FAERS Safety Report 4457530-6 (Version None)
Quarter: 2004Q3

REPORT INFORMATION
  Report Type: 
  Country: None (occurrence: None)
  Receive Date: 20040902
  Receipt Date: 20040525
  Transmission Date: 20050211
  Serious: Yes (Hospitalization)
  Sender: FDA-Public Use
  Company Number: 1616

PATIENT
  Age: 67 Year
  Sex: Female
  Weight: 77.1115 kg

DRUGS (2)
  1. AVINZA [Suspect]
     Indication: BACK PAIN
     Dosage: 60 MG DAILY PO
     Route: 048
     Dates: start: 20040519, end: 20040521
  2. AVINZA [Suspect]
     Indication: NECK PAIN
     Dosage: 60 MG DAILY PO
     Route: 048
     Dates: start: 20040519, end: 20040521

REACTIONS (2)
  - SOMNOLENCE [None]
  - STUPOR [None]
